FAERS Safety Report 20527037 (Version 3)
Quarter: 2022Q1

REPORT INFORMATION
  Report Type: Spontaneous
  Country: IN (occurrence: IN)
  Receive Date: 20220228
  Receipt Date: 20220316
  Transmission Date: 20220423
  Serious: Yes (Hospitalization, Other)
  Sender: FDA-Public Use
  Company Number: IN-GILEAD-2022-0571246

PATIENT
  Age: 32 Year
  Sex: Female

DRUGS (11)
  1. VEKLURY [Suspect]
     Active Substance: REMDESIVIR
     Indication: COVID-19
     Route: 065
  2. OXYGEN [Concomitant]
     Active Substance: OXYGEN
  3. UNSPECIFIED INGREDIENT [Concomitant]
     Active Substance: UNSPECIFIED INGREDIENT
  4. MERO [MEROPENEM TRIHYDRATE] [Concomitant]
     Dosage: 1 G Q12
     Route: 042
  5. CLINDAMYCIN [Concomitant]
     Active Substance: CLINDAMYCIN
     Dosage: 600 MG Q12
     Route: 042
  6. TEICOPLANIN [Concomitant]
     Active Substance: TEICOPLANIN
     Route: 042
  7. METHYLPREDNISOLONE [Concomitant]
     Active Substance: METHYLPREDNISOLONE
     Dosage: 160 MG 2 DOSES
  8. INSULIN NOS [Concomitant]
     Active Substance: INSULIN NOS
  9. MIFEPRISTONE [Concomitant]
     Active Substance: MIFEPRISTONE
  10. MISOPROSTOL [Concomitant]
     Active Substance: MISOPROSTOL
  11. BETAMETHASONE [Concomitant]
     Active Substance: BETAMETHASONE
     Dosage: 24 MG

REACTIONS (2)
  - Induced labour [Recovered/Resolved]
  - Maternal exposure during pregnancy [Recovered/Resolved]
